FAERS Safety Report 7669737-5 (Version None)
Quarter: 2011Q3

REPORT INFORMATION
  Report Type: 
  Country: None (occurrence: None)
  Receive Date: 20110808
  Receipt Date: 20110802
  Transmission Date: 20111222
  Serious: Yes (Other)
  Sender: FDA-Public Use
  Company Number: JP-PFIZER INC-2011170020

PATIENT
  Age: 2 Year
  Sex: Male

DRUGS (8)
  1. ZITHROMAX [Suspect]
     Dosage: UNK
     Route: 048
     Dates: start: 20110722, end: 20110723
  2. ASVERIN [Concomitant]
     Dosage: UNK
     Route: 048
  3. AMBROXOL [Concomitant]
     Dosage: UNK
  4. ALIMEZINE [Concomitant]
     Dosage: UNK
  5. DIHYDROCODEINE PHOSPHATE [Concomitant]
  6. HOKUNALIN [Concomitant]
     Route: 062
  7. ZITHROMAX [Suspect]
     Indication: COUGH
     Dosage: 120 MG
     Route: 048
     Dates: start: 20110720, end: 20110720
  8. PROCATEROL HYDROCHLORIDE [Concomitant]

REACTIONS (1)
  - HYPOTHERMIA [None]
